FAERS Safety Report 8052797-X (Version None)
Quarter: 2012Q1

REPORT INFORMATION
  Report Type: 
  Country: None (occurrence: None)
  Receive Date: 20120117
  Receipt Date: 20120117
  Transmission Date: 20120608
  Serious: Yes (Hospitalization)
  Sender: FDA-Public Use
  Company Number: None

PATIENT
  Sex: Male
  Weight: 60 kg

DRUGS (2)
  1. RITUXIMAB (MOAB C2B8 ANTI CD20, CHIMERIC) [Suspect]
     Dosage: 641.2 MG
  2. MULTI-VITAMIN [Concomitant]

REACTIONS (6)
  - DRUG SCREEN POSITIVE [None]
  - CONFUSIONAL STATE [None]
  - BIPOLAR DISORDER [None]
  - INSOMNIA [None]
  - MANIA [None]
  - EUPHORIC MOOD [None]
